FAERS Safety Report 6500286-3 (Version None)
Quarter: 2009Q4

REPORT INFORMATION
  Report Type: 
  Country: None (occurrence: None)
  Receive Date: 20091215
  Receipt Date: 20091215
  Transmission Date: 20100525
  Serious: Yes (Other)
  Sender: FDA-Public Use
  Company Number: None

PATIENT
  Age: 9 Year
  Sex: Female
  Weight: 29.9374 kg

DRUGS (1)
  1. TOPIRAMATE 25 MG GENERIC [Suspect]
     Indication: MIGRAINE
     Dosage: 25 MG PO
     Route: 048
     Dates: start: 20091117, end: 20091123

REACTIONS (2)
  - EYELID OEDEMA [None]
  - MYOPIA [None]
